FAERS Safety Report 5318781-1 (Version None)
Quarter: 2007Q2

REPORT INFORMATION
  Report Type: 
  Country: None (occurrence: None)
  Receive Date: 20070504
  Receipt Date: 20070504
  Transmission Date: 20071010
  Serious: Yes (Hospitalization)
  Sender: FDA-Public Use
  Company Number: None

PATIENT
  Age: 89 Year
  Sex: Male
  Weight: 108.8 kg

DRUGS (10)
  1. TEMAZEPAM [Suspect]
     Indication: INSOMNIA
     Dosage: 7.5 MG QHS
     Dates: start: 20070111, end: 20070116
  2. SIMVASTATIN [Concomitant]
  3. ALBUTEROL SULFATE AND IPRATROPIUM BROMIDE [Concomitant]
  4. AMIODARONE HCL (PACERONE) [Concomitant]
  5. SENNOSIDES [Concomitant]
  6. HYDROCHLOROTHIAZIDE [Concomitant]
  7. SYNTHROID [Concomitant]
  8. VALSARTAN [Concomitant]
  9. METOPROLOL TARTRATE [Concomitant]
  10. DOCUSATE CA [Concomitant]

REACTIONS (1)
  - DELIRIUM [None]
